FAERS Safety Report 8847805 (Version 1)
Quarter: 2012Q4

REPORT INFORMATION
  Report Type: 
  Country: FR (occurrence: FR)
  Receive Date: 20121018
  Receipt Date: 20121018
  Transmission Date: 20130627
  Serious: Yes (Hospitalization)
  Sender: FDA-Public Use
  Company Number: FR-ABBOTT-12P-056-0995339-00

PATIENT
  Age: 67 Year
  Sex: Female

DRUGS (8)
  1. DEPAKOTE [Suspect]
     Indication: SCHIZOAFFECTIVE DISORDER
     Dosage: Twice a day
     Route: 048
     Dates: start: 2010, end: 20120825
  2. ALLOPURINOL [Suspect]
     Dosage: 200 mg daily
     Route: 048
     Dates: start: 20120709, end: 20120825
  3. ZOLPIDEM [Suspect]
     Indication: PRODUCT USED FOR UNKNOWN INDICATION
     Dosage: 5 mg daily
     Route: 048
     Dates: start: 2011, end: 20120825
  4. LASILIX [Suspect]
     Indication: PRODUCT USED FOR UNKNOWN INDICATION
     Route: 048
     Dates: end: 20120825
  5. ABILIFY [Suspect]
     Indication: PRODUCT USED FOR UNKNOWN INDICATION
     Dosage: 5mg daily
     Route: 048
     Dates: start: 2011, end: 20120825
  6. XANAX [Suspect]
     Indication: PRODUCT USED FOR UNKNOWN INDICATION
     Route: 048
     Dates: end: 20120825
  7. LOXEN [Concomitant]
     Indication: PRODUCT USED FOR UNKNOWN INDICATION
  8. PARACETAMOL [Concomitant]
     Indication: PRODUCT USED FOR UNKNOWN INDICATION

REACTIONS (1)
  - Drug reaction with eosinophilia and systemic symptoms [Recovering/Resolving]
